FAERS Safety Report 16348008 (Version 1)
Quarter: 2019Q2

REPORT INFORMATION
  Report Type: Spontaneous
  Country: IR (occurrence: IR)
  Receive Date: 20190523
  Receipt Date: 20190523
  Transmission Date: 20190711
  Serious: Yes (Death, Other)
  Sender: FDA-Public Use
  Company Number: IR-FRESENIUS KABI-FK201905783

PATIENT
  Age: 29 Year
  Sex: Male

DRUGS (1)
  1. DEXAMETHASONE INJECTION (MANUFACTURER UNKNOWN) [Suspect]
     Active Substance: DEXAMETHASONE
     Indication: MUSCULAR WEAKNESS
     Dosage: UNKNOWN
     Route: 065

REACTIONS (3)
  - Metastases to lung [Fatal]
  - Sepsis [Fatal]
  - Cushing^s syndrome [Not Recovered/Not Resolved]
